FAERS Safety Report 6153877-6 (Version None)
Quarter: 2009Q2

REPORT INFORMATION
  Report Type: 
  Country: None (occurrence: None)
  Receive Date: 20090414
  Receipt Date: 20090407
  Transmission Date: 20091009
  Serious: Yes (Hospitalization)
  Sender: FDA-Public Use
  Company Number: KR-JNJFOC-20090402312

PATIENT
  Age: 48 Year
  Sex: Male
  Weight: 60 kg

DRUGS (4)
  1. DURAGESIC-100 [Suspect]
     Indication: PAIN MANAGEMENT
     Route: 062
  2. ULTRACET [Suspect]
     Indication: PAIN MANAGEMENT
     Route: 048
  3. UNKNOWN DRUG [Concomitant]
     Indication: PAIN MANAGEMENT
     Route: 048
  4. LYRICA [Concomitant]
     Indication: PAIN MANAGEMENT
     Route: 048

REACTIONS (3)
  - NAUSEA [None]
  - ROAD TRAFFIC ACCIDENT [None]
  - SOMNOLENCE [None]
